FAERS Safety Report 4587465-X (Version None)
Quarter: 2005Q1

REPORT INFORMATION
  Report Type: 
  Country: None (occurrence: None)
  Receive Date: 20050215
  Receipt Date: 20050202
  Transmission Date: 20050727
  Serious: Yes (Death)
  Sender: FDA-Public Use
  Company Number: 2005024139

PATIENT
  Age: 50 Year
  Sex: Female

DRUGS (6)
  1. ZITHROMAX [Suspect]
     Indication: PNEUMONIA
     Dosage: 500 MG (500 MG, 1 IN 1 D) INTRAVENOUS
     Route: 042
     Dates: start: 20050131, end: 20050201
  2. CEFOBID [Suspect]
     Indication: PNEUMONIA
     Dosage: 2 GRAM (1 GRAM, 2 IN 1 D), INTRAVENOUS
     Route: 042
     Dates: start: 20050131, end: 20050201
  3. TOTAL PARENTERAL NUTRITION (TOTAL PARENTERAL NUTRITION) [Concomitant]
  4. NITROGLYCERIN [Concomitant]
  5. FUROSEMIDE [Concomitant]
  6. ORNITHINE ASPARTATE (ORNITHINE ASPARTATE) [Concomitant]

REACTIONS (2)
  - DIALYSIS [None]
  - RESPIRATORY FAILURE [None]
